FAERS Safety Report 26139430 (Version 1)
Quarter: 2025Q4

REPORT INFORMATION
  Report Type: Spontaneous
  Country: US (occurrence: US)
  Receive Date: 20251210
  Receipt Date: 20251210
  Transmission Date: 20260119
  Serious: No
  Sender: ALK-ABELLO
  Company Number: US-ALK-ABELLO A/S-2025AA004042

PATIENT

DRUGS (1)
  1. CRANGON SHRIMP [Suspect]
     Active Substance: CRANGON SHRIMP
     Indication: Diagnostic procedure

REACTIONS (1)
  - False negative investigation result [Unknown]
